FAERS Safety Report 10439385 (Version 1)
Quarter: 2014Q3

REPORT INFORMATION
  Report Type: Spontaneous
  Country: US (occurrence: US)
  Receive Date: 20140908
  Receipt Date: 20140908
  Transmission Date: 20150326
  Serious: Yes (Hospitalization)
  Sender: FDA-Public Use
  Company Number: US-BRISTOL-MYERS SQUIBB COMPANY-20613915

PATIENT
  Age: 30 Year
  Sex: Female

DRUGS (2)
  1. GABAPENTIN. [Concomitant]
     Active Substance: GABAPENTIN
     Dates: start: 201401
  2. ABILIFY [Suspect]
     Active Substance: ARIPIPRAZOLE
     Indication: SCHIZOAFFECTIVE DISORDER
     Dosage: 20MG, 15MG?INTP ON:6APR14

REACTIONS (3)
  - Adverse event [Unknown]
  - Off label use [Unknown]
  - Drug ineffective [Unknown]
